FAERS Safety Report 5651866-9 (Version None)
Quarter: 2008Q1

REPORT INFORMATION
  Report Type: 
  Country: None (occurrence: None)
  Receive Date: 20080305
  Receipt Date: 20061024
  Transmission Date: 20080703
  Serious: Yes (Hospitalization, Disabling, Other)
  Sender: FDA-Public Use
  Company Number: US-PFIZER INC-2006136698

PATIENT
  Sex: Male
  Weight: 73.5 kg

DRUGS (3)
  1. CELEBREX [Suspect]
     Indication: PAIN
  2. CELEBREX [Suspect]
     Indication: ARTHRITIS
  3. VIOXX [Suspect]

REACTIONS (5)
  - ACUTE MYOCARDIAL INFARCTION [None]
  - ARTHRITIS [None]
  - AUTOIMMUNE DISORDER [None]
  - BRAIN INJURY [None]
  - CARDIOVASCULAR DISORDER [None]
